FAERS Safety Report 9461950 (Version 1)
Quarter: 2013Q3

REPORT INFORMATION
  Report Type: Spontaneous
  Country: IT (occurrence: IT)
  Receive Date: 20130816
  Receipt Date: 20130816
  Transmission Date: 20140515
  Serious: Yes (Hospitalization)
  Sender: FDA-Public Use
  Company Number: IT-SANOFI-AVENTIS-2013SA079499

PATIENT
  Age: 82 Year
  Sex: Male

DRUGS (6)
  1. CLOPIDOGREL BISULFATE [Suspect]
     Indication: THROMBOSIS PROPHYLAXIS
     Route: 048
     Dates: start: 20130630, end: 20130711
  2. CLEXANE [Interacting]
     Indication: THROMBOSIS PROPHYLAXIS
     Route: 058
     Dates: start: 20130702, end: 20130711
  3. CARDIOASPIRIN [Interacting]
     Indication: PLATELET AGGREGATION INHIBITION
     Route: 048
     Dates: start: 20130630
  4. ATORVASTATIN [Concomitant]
     Indication: HYPERCHOLESTEROLAEMIA
     Route: 048
     Dates: start: 20130702
  5. PANTOPRAZOLE [Concomitant]
     Indication: PROPHYLAXIS
     Route: 048
     Dates: start: 20130630
  6. BISOPROLOL HEMIFUMARATE [Concomitant]
     Indication: ATRIAL FIBRILLATION
     Route: 048
     Dates: start: 20130701

REACTIONS (3)
  - Haematuria [Recovered/Resolved]
  - Drug interaction [Unknown]
  - Thrombosis [Recovered/Resolved]
